FAERS Safety Report 25661132 (Version 1)
Quarter: 2025Q3

REPORT INFORMATION
  Report Type: Spontaneous
  Country: US (occurrence: US)
  Receive Date: 20250808
  Receipt Date: 20250808
  Transmission Date: 20251020
  Serious: No
  Sender: PHARMACEUTICAL ASSOC
  Company Number: US-PAIPHARMA-2025-US-015821

PATIENT
  Age: 70 Year
  Sex: Female
  Weight: 54.43 kg

DRUGS (7)
  1. LACTULOSE [Suspect]
     Active Substance: LACTULOSE
     Indication: Constipation
     Route: 048
     Dates: start: 20250322, end: 20250331
  2. CALCIUM [Concomitant]
     Active Substance: CALCIUM
  3. VITAMIN D [Concomitant]
     Active Substance: VITAMIN D NOS
  4. VITAMIN B COMPLEX [Concomitant]
     Active Substance: CYANOCOBALAMIN\DEXPANTHENOL\NIACINAMIDE\PYRIDOXINE HYDROCHLORIDE\RIBOFLAVIN 5^-PHOSPHATE SODIUM\THIA
  5. VITAMIN B12 [Concomitant]
     Active Substance: CYANOCOBALAMIN
  6. RABEPRAZOLE [Concomitant]
     Active Substance: RABEPRAZOLE
  7. CARAFATE [Concomitant]
     Active Substance: SUCRALFATE

REACTIONS (8)
  - Abdominal distension [Recovered/Resolved]
  - Off label use [Recovered/Resolved]
  - Flatulence [Recovered/Resolved]
  - Restlessness [Unknown]
  - Gastrointestinal sounds abnormal [Unknown]
  - Insomnia [Recovered/Resolved]
  - Brain fog [Recovered/Resolved]
  - Drug ineffective [Unknown]

NARRATIVE: CASE EVENT DATE: 20250322
